FAERS Safety Report 10159125 (Version 3)
Quarter: 2014Q2

REPORT INFORMATION
  Report Type: Spontaneous
  Country: US (occurrence: US)
  Receive Date: 20140508
  Receipt Date: 20140527
  Transmission Date: 20141212
  Serious: Yes (Hospitalization, Other)
  Sender: FDA-Public Use
  Company Number: US-UCBSA-120187

PATIENT
  Age: 44 Year
  Sex: Male
  Weight: 89.8 kg

DRUGS (5)
  1. VIMPAT [Suspect]
     Indication: EPILEPSY
     Dosage: 200 MG IN THE MORNING AND 200 MG IN THE EVENING
     Route: 048
  2. VIMPAT [Suspect]
     Indication: CONVULSION
     Dosage: 200 MG IN THE MORNING AND 200 MG IN THE EVENING
     Route: 048
  3. KEPPRA XR [Suspect]
     Indication: EPILEPSY
     Route: 048
  4. KEPPRA XR [Suspect]
     Indication: CONVULSION
     Route: 048
  5. DEPAKOTE [Concomitant]
     Indication: EPILEPSY
     Dosage: 1000 MG IN THE MORNING AND 1000 MG IN THE EVENING
     Route: 048

REACTIONS (11)
  - Brain neoplasm [Unknown]
  - Generalised tonic-clonic seizure [Recovered/Resolved]
  - Vision blurred [Recovered/Resolved]
  - Headache [Recovered/Resolved]
  - Fatigue [Recovered/Resolved]
  - Decreased appetite [Recovered/Resolved]
  - Aphasia [Recovered/Resolved]
  - Asthenia [Recovered/Resolved]
  - Balance disorder [Recovered/Resolved]
  - Amnesia [Recovered/Resolved]
  - Inappropriate schedule of drug administration [Unknown]
